FAERS Safety Report 7916633-1 (Version None)
Quarter: 2011Q4

REPORT INFORMATION
  Report Type: 
  Country: None (occurrence: None)
  Receive Date: 20111116
  Receipt Date: 20111110
  Transmission Date: 20120403
  Serious: No
  Sender: FDA-Public Use
  Company Number: US-PFIZER INC-2011073249

PATIENT
  Sex: Female
  Weight: 56.689 kg

DRUGS (7)
  1. FEXORAL [Concomitant]
     Dosage: UNK
  2. NEURONTIN [Suspect]
     Dosage: UNK
  3. XANAX [Suspect]
     Dosage: UNK
  4. ZOLOFT [Suspect]
     Indication: DEPRESSION
     Dosage: 50 MG, 1X/DAY
     Route: 048
     Dates: start: 20101001
  5. ZOLOFT [Suspect]
     Dosage: 100 MG, 1X/DAY
     Route: 048
  6. PHENERGAN [Concomitant]
     Dosage: UNK
  7. LORTAB [Concomitant]
     Dosage: UNK

REACTIONS (5)
  - PAIN IN EXTREMITY [None]
  - MUSCLE SPASMS [None]
  - DRUG INEFFECTIVE [None]
  - INSOMNIA [None]
  - MEMORY IMPAIRMENT [None]
